FAERS Safety Report 17689680 (Version 2)
Quarter: 2020Q2

REPORT INFORMATION
  Report Type: Spontaneous
  Country: FR (occurrence: FR)
  Receive Date: 20200421
  Receipt Date: 20200604
  Transmission Date: 20200714
  Serious: Yes (Other)
  Sender: FDA-Public Use
  Company Number: FR-MYLANLABS-2020M1038291

PATIENT
  Age: 51 Year
  Sex: Female

DRUGS (16)
  1. DUPHALAC [Concomitant]
     Active Substance: LACTULOSE
     Indication: CONSTIPATION
     Dosage: 6 DOSAGE FORM, QD
     Route: 048
     Dates: start: 20200229
  2. PARACETAMOL [Concomitant]
     Active Substance: ACETAMINOPHEN
     Indication: PAIN
     Dosage: SI DOULEUR
     Route: 042
     Dates: start: 20200227
  3. ONDANSETRON [Suspect]
     Active Substance: ONDANSETRON
     Indication: VOMITING
     Dosage: 8 MILLIGRAM, QD
     Route: 042
     Dates: start: 20200227, end: 20200302
  4. FENTANYL. [Suspect]
     Active Substance: FENTANYL
     Indication: PAIN
     Dosage: 200 MICROGRAM
     Route: 045
     Dates: start: 20200302, end: 20200306
  5. AMBISOME [Concomitant]
     Active Substance: AMPHOTERICIN B
     Indication: PYREXIA
     Dosage: 200 MILLIGRAM, QD (POUDRE POUR SUSPENSION DE LIPOSOMES POUR PERFUSION)
     Route: 042
     Dates: start: 20200219, end: 20200306
  6. MIDOSTAURINE [Concomitant]
     Active Substance: MIDOSTAURIN
     Indication: ACUTE LEUKAEMIA
     Dosage: 100 MILLIGRAM, QD
     Route: 048
     Dates: start: 20200225
  7. ACICLOVIR [Concomitant]
     Active Substance: ACYCLOVIR
     Indication: PROPHYLAXIS
     Dosage: 250 MILLIGRAM, Q8H
     Route: 042
     Dates: start: 20200222, end: 20200306
  8. CEFTAZIDIME. [Concomitant]
     Active Substance: CEFTAZIDIME
     Indication: ANTIBIOTIC THERAPY
     Dosage: 6 GRAM, QD
     Route: 042
     Dates: start: 20200217, end: 20200307
  9. HYDROXYZINE [Suspect]
     Active Substance: HYDROXYZINE HYDROCHLORIDE
     Indication: ANXIETY
     Dosage: 150 MILLIGRAM
     Route: 048
     Dates: start: 20200302, end: 20200303
  10. METOCLOPRAMIDE. [Concomitant]
     Active Substance: METOCLOPRAMIDE
     Indication: VOMITING
     Dosage: 60 MILLIGRAM, QD
     Route: 048
     Dates: start: 20200227
  11. VANCOMYCIN [Suspect]
     Active Substance: VANCOMYCIN
     Indication: ANTIBIOTIC THERAPY
     Dosage: 3250 MILLIGRAM, QD
     Route: 042
     Dates: start: 20200217, end: 20200303
  12. CYTARABINE. [Concomitant]
     Active Substance: CYTARABINE
     Indication: ACUTE LEUKAEMIA
     Dosage: 352 MILLIGRAM
     Route: 042
     Dates: start: 20200214, end: 20200220
  13. IDARUBICIN [Suspect]
     Active Substance: IDARUBICIN
     Indication: ACUTE LEUKAEMIA
     Dosage: 15.8 MILLIGRAM
     Route: 042
     Dates: start: 20200214, end: 20200218
  14. ALPRAZOLAM. [Suspect]
     Active Substance: ALPRAZOLAM
     Indication: ANXIETY
     Dosage: 0.25 MILLIGRAM, TOTAL
     Route: 048
     Dates: start: 20200301, end: 20200301
  15. METRONIDAZOLE. [Concomitant]
     Active Substance: METRONIDAZOLE
     Indication: PROPHYLAXIS
     Dosage: 500 MILLIGRAM, Q8H
     Route: 042
     Dates: start: 20200217, end: 20200306
  16. FUNGIZONE [Concomitant]
     Active Substance: AMPHOTERICIN B
     Indication: GASTROINTESTINAL CANDIDIASIS
     Dosage: 4 DOSAGE FORM, QD
     Route: 048
     Dates: start: 20200302

REACTIONS (1)
  - Rash maculo-papular [Recovered/Resolved]

NARRATIVE: CASE EVENT DATE: 20200302
